FAERS Safety Report 20512186 (Version 2)
Quarter: 2022Q2

REPORT INFORMATION
  Report Type: Spontaneous
  Country: US (occurrence: US)
  Receive Date: 20220224
  Receipt Date: 20220419
  Transmission Date: 20220720
  Serious: Yes (Other)
  Sender: FDA-Public Use
  Company Number: US-Clinigen Group PLC/ Clinigen Healthcare Ltd-US-CLGN-22-00059

PATIENT
  Age: 11 Year
  Sex: Male

DRUGS (4)
  1. DEXRAZOXANE HYDROCHLORIDE [Suspect]
     Active Substance: DEXRAZOXANE HYDROCHLORIDE
     Indication: Chemotherapy cardiotoxicity attenuation
     Dosage: 250 MG/M2
     Dates: start: 20191111, end: 20191111
  2. DEXRAZOXANE HYDROCHLORIDE [Suspect]
     Active Substance: DEXRAZOXANE HYDROCHLORIDE
     Dosage: 250 MG/M2
     Dates: start: 20191118, end: 20191118
  3. DEXRAZOXANE HYDROCHLORIDE [Suspect]
     Active Substance: DEXRAZOXANE HYDROCHLORIDE
     Dosage: 250 MG/M2
     Dates: start: 20191125, end: 20191125
  4. DAUNORUBICIN [Concomitant]
     Active Substance: DAUNORUBICIN
     Indication: Chemotherapy

REACTIONS (1)
  - Off label use [Unknown]
